FAERS Safety Report 6041620-0 (Version None)
Quarter: 2009Q1

REPORT INFORMATION
  Report Type: 
  Country: None (occurrence: None)
  Receive Date: 20090116
  Receipt Date: 20090113
  Transmission Date: 20090719
  Serious: Yes (Other)
  Sender: FDA-Public Use
  Company Number: D0060145A

PATIENT
  Age: 81 Year
  Sex: Female
  Weight: 50 kg

DRUGS (6)
  1. AVANDIA [Suspect]
     Indication: DIABETES MELLITUS
     Dosage: 4MG PER DAY
     Route: 048
     Dates: start: 20060101, end: 20080801
  2. LANITOP [Concomitant]
     Route: 065
  3. METFORMIN [Concomitant]
     Route: 065
  4. METOPROLOL TARTRATE [Concomitant]
     Route: 065
  5. TORSEMIDE [Concomitant]
     Route: 065
  6. DIOVAN [Concomitant]
     Route: 065

REACTIONS (2)
  - DYSPNOEA [None]
  - PLEURAL EFFUSION [None]
